FAERS Safety Report 7391792-0 (Version None)
Quarter: 2011Q2

REPORT INFORMATION
  Report Type: 
  Country: None (occurrence: None)
  Receive Date: 20110404
  Receipt Date: 20110330
  Transmission Date: 20111010
  Serious: Yes (Hospitalization)
  Sender: FDA-Public Use
  Company Number: US-JNJFOC-20110309033

PATIENT
  Age: 48 Year
  Sex: Male

DRUGS (10)
  1. NICOTINE [Concomitant]
  2. HEPARIN SODIUM [Suspect]
     Indication: PERIPHERAL EMBOLISM
  3. OXYCONTIN [Concomitant]
  4. PLAVIX [Concomitant]
  5. FAMOTIDINE [Suspect]
     Route: 048
  6. GABAPENTIN [Concomitant]
  7. PLAVIX [Concomitant]
  8. FAMOTIDINE [Suspect]
     Indication: PRODUCT USED FOR UNKNOWN INDICATION
     Route: 048
  9. MORPHINE [Concomitant]
  10. AMITRIPTYLINE [Concomitant]

REACTIONS (1)
  - HEPARIN-INDUCED THROMBOCYTOPENIA [None]
